FAERS Safety Report 5965159-3 (Version None)
Quarter: 2008Q4

REPORT INFORMATION
  Report Type: 
  Country: None (occurrence: None)
  Receive Date: 20081125
  Receipt Date: 20081113
  Transmission Date: 20090506
  Serious: Yes (Hospitalization)
  Sender: FDA-Public Use
  Company Number: US-KINGPHARMUSA00001-K200801303

PATIENT
  Sex: Male

DRUGS (1)
  1. CORGARD [Suspect]

REACTIONS (2)
  - MEDICATION ERROR [None]
  - WITHDRAWAL ARRHYTHMIA [None]
